FAERS Safety Report 6931953-5 (Version None)
Quarter: 2010Q3

REPORT INFORMATION
  Report Type: 
  Country: None (occurrence: None)
  Receive Date: 20100812
  Receipt Date: 20090622
  Transmission Date: 20110219
  Serious: No
  Sender: FDA-Public Use
  Company Number: 2009-000161

PATIENT
  Age: 49 Year
  Sex: Female
  Weight: 79.8331 kg

DRUGS (1)
  1. ZICAM ALLERGY RELIEF NASAL GEL [Suspect]
     Dosage: SPORADIC
     Dates: start: 20090401

REACTIONS (3)
  - AGEUSIA [None]
  - NAUSEA [None]
  - VOMITING [None]
